FAERS Safety Report 7973798-3 (Version None)
Quarter: 2011Q4

REPORT INFORMATION
  Report Type: 
  Country: None (occurrence: None)
  Receive Date: 20111213
  Receipt Date: 20111203
  Transmission Date: 20120403
  Serious: Yes (Other)
  Sender: FDA-Public Use
  Company Number: US-ROCHE-GNE319785

PATIENT
  Sex: Male

DRUGS (4)
  1. AMLODIPINE [Concomitant]
  2. LUCENTIS [Suspect]
     Indication: PRODUCT USED FOR UNKNOWN INDICATION
     Dates: start: 20110429
  3. DIOVAN [Concomitant]
  4. FLECAINIDE ACETATE [Concomitant]

REACTIONS (3)
  - BLINDNESS [None]
  - VITREOUS FLOATERS [None]
  - EYE INFECTION [None]
